FAERS Safety Report 8119887-4 (Version None)
Quarter: 2012Q1

REPORT INFORMATION
  Report Type: 
  Country: None (occurrence: None)
  Receive Date: 20120207
  Receipt Date: 20120202
  Transmission Date: 20120608
  Serious: No
  Sender: FDA-Public Use
  Company Number: US-B.I. PHARMACEUTICALS,INC./RIDGEFIELD-2010-BP-10802BP

PATIENT
  Sex: Male

DRUGS (8)
  1. MULTI-VITAMIN [Concomitant]
     Indication: VITAMIN SUPPLEMENTATION
     Route: 048
  2. CATAPRES-TTS-1 [Suspect]
     Dosage: 0.2 MG
     Dates: start: 20080101, end: 20080101
  3. ATENOLOL [Concomitant]
     Indication: HYPERTENSION
     Dosage: 100 MG
     Route: 048
  4. FISH OIL [Concomitant]
     Indication: VITAMIN SUPPLEMENTATION
     Route: 048
  5. TRIAMTERENE AND HYDROCHLOROTHIAZIDE [Concomitant]
     Indication: HYPERTENSION
     Route: 048
  6. CATAPRES-TTS-1 [Suspect]
     Dosage: 0.1 MG
     Route: 061
     Dates: start: 20090101
  7. CATAPRES-TTS-1 [Suspect]
     Indication: HYPERTENSION
     Dosage: 0.1 MG
     Dates: start: 20070101, end: 20070101
  8. CALCIUM [Concomitant]
     Indication: VITAMIN SUPPLEMENTATION
     Route: 048

REACTIONS (16)
  - FEELING ABNORMAL [None]
  - DIARRHOEA [None]
  - APPLICATION SITE RASH [None]
  - BLOOD PRESSURE INCREASED [None]
  - SLEEP DISORDER [None]
  - DEPRESSED MOOD [None]
  - COUGH [None]
  - BLOOD PRESSURE FLUCTUATION [None]
  - ARTHRALGIA [None]
  - PRURITUS [None]
  - DRUG EFFECT DECREASED [None]
  - MUSCLE TWITCHING [None]
  - FLUID RETENTION [None]
  - CONSTIPATION [None]
  - HEADACHE [None]
  - APPLICATION SITE IRRITATION [None]
